FAERS Safety Report 4492385-5 (Version None)
Quarter: 2005Q1

REPORT INFORMATION
  Report Type: 
  Country: None (occurrence: None)
  Receive Date: 20041102
  Receipt Date: 20041102
  Transmission Date: 20050727
  Serious: No
  Sender: FDA-Public Use
  Company Number: None

PATIENT
  Sex: Female

DRUGS (27)
  1. IRINOTECAN HCL [Suspect]
     Indication: METASTASES TO CENTRAL NERVOUS SYSTEM
     Dosage: 350 MG /M2 EVERY 3 WK
     Dates: start: 20040909
  2. IRINOTECAN HCL [Suspect]
     Indication: NON-SMALL CELL LUNG CANCER
     Dosage: 350 MG /M2 EVERY 3 WK
     Dates: start: 20040909
  3. AMBIEN [Concomitant]
  4. LOVENOX [Concomitant]
  5. ZOLOFT [Concomitant]
  6. COMPAZINE [Concomitant]
  7. BACTRIM DS [Concomitant]
  8. COMBIVENT [Concomitant]
  9. GLUCOTROL [Concomitant]
  10. DIFLUCAN [Concomitant]
  11. DECADRON [Concomitant]
  12. GLUCOPHAGE [Concomitant]
  13. ZESTRIL [Concomitant]
  14. VITAMIN E [Concomitant]
  15. ASPIRIN [Concomitant]
  16. LIPITOR [Concomitant]
  17. OXYCODONE HCL [Concomitant]
  18. HCL [Concomitant]
  19. CIPROFLOXACIN [Concomitant]
  20. LOPERAMIDE HCL [Concomitant]
  21. ALBUTEROL [Concomitant]
  22. ZOLOFT [Concomitant]
  23. COMBIVENT [Concomitant]
  24. VASOTEC [Concomitant]
  25. MOTRIN [Concomitant]
  26. ACETAMINOPHEN [Concomitant]
  27. COLACE [Concomitant]

REACTIONS (3)
  - OEDEMA PERIPHERAL [None]
  - PAIN IN EXTREMITY [None]
  - PULMONARY EMBOLISM [None]
